FAERS Safety Report 4675026-3 (Version None)
Quarter: 2005Q2

REPORT INFORMATION
  Report Type: 
  Country: None (occurrence: None)
  Receive Date: 20050526
  Receipt Date: 20050518
  Transmission Date: 20051028
  Serious: Yes (Life-Threatening, Disabling)
  Sender: FDA-Public Use
  Company Number: US-MERCK-0505USA02223

PATIENT
  Age: 51 Year
  Sex: Female

DRUGS (2)
  1. VIOXX [Suspect]
     Indication: SPONDYLITIS
     Route: 048
     Dates: start: 20030101, end: 20040101
  2. ULTRAM [Concomitant]
     Route: 065

REACTIONS (3)
  - BACK DISORDER [None]
  - CHEST PAIN [None]
  - VENTRICULAR HYPERTROPHY [None]
